FAERS Safety Report 11318706 (Version 9)
Quarter: 2018Q3

REPORT INFORMATION
  Report Type: Report from Study
  Country: US (occurrence: US)
  Receive Date: 20150729
  Receipt Date: 20180827
  Transmission Date: 20181010
  Serious: No
  Sender: FDA-Public Use
  Company Number: PHHY2013US099848

PATIENT
  Age: 52 Year
  Sex: Female

DRUGS (2)
  1. GILENYA [Suspect]
     Active Substance: FINGOLIMOD HYDROCHLORIDE
     Indication: MULTIPLE SCLEROSIS
     Dosage: UNK, QD
     Route: 048
  2. VITAMIN B COMPLEX [Concomitant]
     Active Substance: CYANOCOBALAMIN\DEXPANTHENOL\NIACINAMIDE\PYRIDOXINE HYDROCHLORIDE\RIBOFLAVIN 5^-PHOSPHATE SODIUM\THIAMINE HYDROCHLORIDE\VITAMIN B COMPLEX
     Indication: GENERAL PHYSICAL HEALTH DETERIORATION
     Dosage: UNK
     Route: 065
     Dates: start: 20150730

REACTIONS (10)
  - Gingivitis [Recovered/Resolved]
  - Emotional distress [Recovered/Resolved]
  - Muscular weakness [Unknown]
  - Supraventricular extrasystoles [Recovered/Resolved]
  - Emotional distress [Unknown]
  - Gait disturbance [Unknown]
  - Muscular weakness [Recovered/Resolved]
  - Rash generalised [Recovered/Resolved]
  - Muscular weakness [Recovered/Resolved]
  - Postural tremor [Unknown]

NARRATIVE: CASE EVENT DATE: 20121107
